FAERS Safety Report 4685784-X (Version None)
Quarter: 2005Q2

REPORT INFORMATION
  Report Type: 
  Country: None (occurrence: None)
  Receive Date: 20050607
  Receipt Date: 20050607
  Transmission Date: 20051028
  Serious: Yes (Other)
  Sender: FDA-Public Use
  Company Number: None

PATIENT
  Age: 44 Year
  Sex: Female
  Weight: 90.2658 kg

DRUGS (1)
  1. GABAPENTIN [Suspect]
     Indication: CONVERSION DISORDER
     Dosage: 2 CAP TID
     Dates: start: 20050517

REACTIONS (5)
  - CONFUSIONAL STATE [None]
  - INCOHERENT [None]
  - NAUSEA [None]
  - PHARMACEUTICAL PRODUCT COMPLAINT [None]
  - TINNITUS [None]
